FAERS Safety Report 8676200 (Version 2)
Quarter: 2012Q4

REPORT INFORMATION
  Report Type: 
  Country: US (occurrence: US)
  Receive Date: 20120720
  Receipt Date: 20120906
  Transmission Date: 20130627
  Serious: No
  Sender: FDA-Public Use
  Company Number: US-009507513-1207USA000817

PATIENT

DRUGS (1)
  1. TRUSOPT [Suspect]
     Indication: GLAUCOMA
     Dosage: 1 DF, bid
     Route: 047

REACTIONS (3)
  - Photophobia [Unknown]
  - Eye pain [Unknown]
  - Product quality issue [Unknown]
